FAERS Safety Report 9472210 (Version 1)
Quarter: 2013Q3

REPORT INFORMATION
  Report Type: Spontaneous
  Country: US (occurrence: None)
  Receive Date: 20130821
  Receipt Date: 20130821
  Transmission Date: 20140515
  Serious: No
  Sender: FDA-Public Use
  Company Number: None

PATIENT
  Age: 53 Year
  Sex: Female
  Weight: 96.62 kg

DRUGS (2)
  1. SKELAXIN [Suspect]
     Indication: MUSCLE RELAXANT THERAPY
     Route: 048
  2. SKELAXIN [Suspect]
     Indication: INJURY
     Route: 048

REACTIONS (1)
  - Weight increased [None]
